FAERS Safety Report 5522869-X (Version None)
Quarter: 2007Q4

REPORT INFORMATION
  Report Type: 
  Country: None (occurrence: None)
  Receive Date: 20071115
  Receipt Date: 20071031
  Transmission Date: 20080405
  Serious: Yes (Hospitalization)
  Sender: FDA-Public Use
  Company Number: 163508ISR

PATIENT
  Age: 45 Year
  Sex: Female

DRUGS (1)
  1. CISPLATIN [Suspect]
     Indication: CERVIX CARCINOMA
     Dosage: (240 MG/M2)

REACTIONS (9)
  - ASTHENIA [None]
  - CONVULSION [None]
  - HEADACHE [None]
  - HYPOMAGNESAEMIA [None]
  - LEUKOENCEPHALOPATHY [None]
  - QUADRIPARESIS [None]
  - SOMNOLENCE [None]
  - UNRESPONSIVE TO STIMULI [None]
  - VISUAL DISTURBANCE [None]
